FAERS Safety Report 21023131 (Version 1)
Quarter: 2022Q2

REPORT INFORMATION
  Report Type: Spontaneous
  Country: US (occurrence: None)
  Receive Date: 20220629
  Receipt Date: 20220629
  Transmission Date: 20220721
  Serious: Yes (Hospitalization)
  Sender: FDA-Public Use
  Company Number: None

PATIENT
  Age: 18 Year
  Sex: Male

DRUGS (13)
  1. PULMOZYME [Suspect]
     Active Substance: DORNASE ALFA
     Indication: Cystic fibrosis
     Dosage: OTHER QUANTITY : 2.5MG/2.5ML;?FREQUENCY : AS DIRECTED;?
     Route: 055
  2. ALBUTEROL SULFATE [Concomitant]
     Active Substance: ALBUTEROL SULFATE
  3. AZITHROMYCIN [Concomitant]
     Active Substance: AZITHROMYCIN
  4. CALTRATE [Concomitant]
     Active Substance: CALCIUM CARBONATE
  5. GVOKE PFS INJ [Concomitant]
  6. PULMICORT INH [Concomitant]
  7. PULMOZYME SOL [Concomitant]
  8. SODIUM CHLOR NEB 7% [Concomitant]
  9. SODIUM CHLORIDE [Concomitant]
     Active Substance: SODIUM CHLORIDE
  10. TOBI NEB [Concomitant]
  11. TOBRAMYCIN [Concomitant]
     Active Substance: TOBRAMYCIN
  12. VITAMIN D [Concomitant]
     Active Substance: VITAMIN D NOS
  13. ZENPEP [Concomitant]
     Active Substance: PANCRELIPASE AMYLASE\PANCRELIPASE LIPASE\PANCRELIPASE PROTEASE

REACTIONS (1)
  - Cystic fibrosis [None]

NARRATIVE: CASE EVENT DATE: 20220621
